FAERS Safety Report 9921060 (Version 1)
Quarter: 2014Q1

REPORT INFORMATION
  Report Type: Report from Study
  Country: FR (occurrence: FR)
  Receive Date: 20140225
  Receipt Date: 20140225
  Transmission Date: 20141002
  Serious: Yes (Hospitalization)
  Sender: FDA-Public Use
  Company Number: FR-BRISTOL-MYERS SQUIBB COMPANY-20221370

PATIENT
  Age: 62 Year
  Sex: Female

DRUGS (3)
  1. CARBOPLATIN [Suspect]
     Indication: OVARIAN CANCER
     Dosage: LAST DOSE TAKEN PRIOR TO SAE:10JAN14
     Route: 065
     Dates: start: 20140110
  2. PACLITAXEL [Suspect]
     Indication: OVARIAN CANCER
     Dosage: LAST DOSE TAKEN PRIOR TO SAE:10JAN14
     Route: 065
     Dates: start: 20140110
  3. BEVACIZUMAB [Suspect]
     Indication: OVARIAN CANCER
     Dosage: LAST DOSE: 10JAN14
     Route: 065
     Dates: start: 20140110

REACTIONS (1)
  - Diarrhoea [Not Recovered/Not Resolved]
